FAERS Safety Report 23142708 (Version 2)
Quarter: 2023Q4

REPORT INFORMATION
  Report Type: Spontaneous
  Country: IN (occurrence: IN)
  Receive Date: 20231103
  Receipt Date: 20231107
  Transmission Date: 20240110
  Serious: Yes (Death, Life-Threatening, Hospitalization, Other)
  Sender: FDA-Public Use
  Company Number: None

PATIENT
  Sex: Female

DRUGS (8)
  1. VANCOMYCIN [Suspect]
     Active Substance: VANCOMYCIN
     Indication: Antibiotic therapy
     Dosage: UNK (ADMINISTERED AS PER THE BODY WEIGHT AND GESTATIONAL AGE OF THE NEONATE)
     Route: 065
  2. MEROPENEM [Suspect]
     Active Substance: MEROPENEM
     Indication: Antibiotic therapy
     Dosage: UNK (ADMINISTERED AS PER THE BODY WEIGHT AND GESTATIONAL AGE OF THE NEONATE.)
     Route: 065
  3. COLISTIN [Suspect]
     Active Substance: COLISTIN
     Indication: Antibiotic therapy
     Dosage: UNK (ADMINISTERED AS PER THE BODY WEIGHT AND GESTATIONAL AGE OF THE NEONATE)
     Route: 065
  4. OXYGEN [Concomitant]
     Active Substance: OXYGEN
     Indication: Neonatal respiratory distress
     Dosage: UNK
     Route: 065
  5. PHENOBARBITAL [Concomitant]
     Active Substance: PHENOBARBITAL
     Indication: Seizure
     Dosage: UNK
     Route: 065
  6. PHENYTOIN [Concomitant]
     Active Substance: PHENYTOIN
     Indication: Seizure
     Dosage: UNK
     Route: 065
  7. LEVETIRACETAM [Concomitant]
     Active Substance: LEVETIRACETAM
     Indication: Seizure
     Dosage: UNK
     Route: 065
  8. MIDAZOLAM [Concomitant]
     Active Substance: MIDAZOLAM
     Indication: Seizure
     Dosage: UNK
     Route: 065

REACTIONS (4)
  - Intraventricular haemorrhage neonatal [Fatal]
  - Rhinocerebral mucormycosis [Fatal]
  - Cerebral venous thrombosis [Fatal]
  - Condition aggravated [Fatal]
